FAERS Safety Report 19241768 (Version 1)
Quarter: 2021Q2

REPORT INFORMATION
  Report Type: Spontaneous
  Country: US (occurrence: US)
  Receive Date: 20210511
  Receipt Date: 20210511
  Transmission Date: 20210717
  Serious: Yes (Other)
  Sender: FDA-Public Use
  Company Number: US-GLENMARK PHARMACEUTICALS-2021GMK053865

PATIENT
  Age: 88 Year
  Sex: Female

DRUGS (1)
  1. CLOBETASOL PROPIONATE CREAM USP, 0.05% [Suspect]
     Active Substance: CLOBETASOL PROPIONATE
     Indication: SEBORRHOEIC DERMATITIS
     Dosage: UNK, PRN (AS NEEDED APPLICATION)
     Route: 061

REACTIONS (5)
  - Hypothalamic pituitary adrenal axis suppression [Recovered/Resolved]
  - Syncope [Recovered/Resolved]
  - Fall [Recovered/Resolved]
  - Application site atrophy [Recovered/Resolved]
  - Secondary adrenocortical insufficiency [Recovered/Resolved]
